FAERS Safety Report 6059273-4 (Version None)
Quarter: 2009Q1

REPORT INFORMATION
  Report Type: 
  Country: None (occurrence: None)
  Receive Date: 20090128
  Receipt Date: 20090116
  Transmission Date: 20090719
  Serious: Yes (Other)
  Sender: FDA-Public Use
  Company Number: 230020K09BRA

PATIENT
  Age: 26 Year
  Sex: Female

DRUGS (2)
  1. REBIF [Suspect]
     Dosage: 44 MCG, 3 IN 1 WEEKS
     Dates: start: 20080901
  2. ACETAMINOPHEN [Concomitant]

REACTIONS (5)
  - BLINDNESS TRANSIENT [None]
  - FACE INJURY [None]
  - HEADACHE [None]
  - LOSS OF CONSCIOUSNESS [None]
  - SCREAMING [None]
